FAERS Safety Report 9455854 (Version 1)
Quarter: 2013Q3

REPORT INFORMATION
  Report Type: Spontaneous
  Country: JP (occurrence: None)
  Receive Date: 20130808
  Receipt Date: 20130808
  Transmission Date: 20140515
  Serious: Yes (Hospitalization, Other)
  Sender: FDA-Public Use
  Company Number: CO-OR-JP-2013-013

PATIENT
  Age: 10 Year
  Sex: Male

DRUGS (2)
  1. PREDNISOLONE [Suspect]
     Indication: ALLERGIC GRANULOMATOUS ANGIITIS
     Dosage: (1.5 MG/KG)
  2. PRANLUKAST [Suspect]
     Indication: ASTHMA

REACTIONS (10)
  - Asthma [None]
  - Allergic granulomatous angiitis [None]
  - Pericardial effusion [None]
  - Aphagia [None]
  - General physical health deterioration [None]
  - Large intestinal ulcer [None]
  - Weight decreased [None]
  - Asthenia [None]
  - Hypertension [None]
  - Toxicity to various agents [None]
